FAERS Safety Report 11740349 (Version 2)
Quarter: 2015Q4

REPORT INFORMATION
  Report Type: Spontaneous
  Country: US (occurrence: US)
  Receive Date: 20151110
  Receipt Date: 20151120
  Transmission Date: 20160304
  Serious: No
  Sender: FDA-Public Use
  Company Number: US-ELI_LILLY_AND_COMPANY-US201111006781

PATIENT
  Age: 80 Year
  Sex: Female
  Weight: 52.16 kg

DRUGS (9)
  1. FORTEO [Suspect]
     Active Substance: TERIPARATIDE
     Dosage: 20 UG, QD
     Route: 065
  2. FORTEO [Suspect]
     Active Substance: TERIPARATIDE
     Dosage: 20 UG, QD
     Route: 065
  3. HYALURONIC ACID [Concomitant]
     Active Substance: HYALURONIC ACID
  4. VITAMIN D [Concomitant]
     Active Substance: CHOLECALCIFEROL
  5. FISH OIL [Concomitant]
     Active Substance: FISH OIL
  6. VITAMIN K [Concomitant]
     Active Substance: PHYTONADIONE
  7. FORTEO [Suspect]
     Active Substance: TERIPARATIDE
     Dosage: 20 UG, QD
     Route: 065
  8. FORTEO [Suspect]
     Active Substance: TERIPARATIDE
     Indication: OSTEOPOROSIS
     Dosage: 20 UG, QD
     Route: 065
  9. CALCIUM                                 /N/A/ [Concomitant]

REACTIONS (13)
  - Blood alkaline phosphatase increased [Unknown]
  - Fear [Unknown]
  - Feeling abnormal [Unknown]
  - Nail discolouration [Unknown]
  - Arthropathy [Unknown]
  - Cough [Not Recovered/Not Resolved]
  - Alopecia [Not Recovered/Not Resolved]
  - Onychoclasis [Unknown]
  - Injection site bruising [Not Recovered/Not Resolved]
  - pH body fluid abnormal [Unknown]
  - Bone density abnormal [Unknown]
  - Rhinorrhoea [Unknown]
  - Nail disorder [Not Recovered/Not Resolved]

NARRATIVE: CASE EVENT DATE: 20111113
